FAERS Safety Report 9331906 (Version 1)
Quarter: 2013Q2

REPORT INFORMATION
  Report Type: Spontaneous
  Country: GB (occurrence: None)
  Receive Date: 20130603
  Receipt Date: 20130603
  Transmission Date: 20140414
  Serious: Yes (Death, Other)
  Sender: FDA-Public Use
  Company Number: GB-022883

PATIENT
  Age: 12 Year
  Sex: Male

DRUGS (4)
  1. BUSULFAN [Suspect]
     Indication: HISTIOCYTOSIS HAEMATOPHAGIC
  2. CAMPATH (ALEMTUZUMAB) [Concomitant]
  3. CYCLOPHOSPHAMIDE (CYCLOPHOSPHAMIDE) [Concomitant]
  4. FLUDARABINE (FLUDARABINE) [Concomitant]

REACTIONS (2)
  - Adenovirus infection [None]
  - Graft versus host disease in skin [None]
